FAERS Safety Report 6752159-9 (Version None)
Quarter: 2010Q2

REPORT INFORMATION
  Report Type: 
  Country: None (occurrence: None)
  Receive Date: 20100526
  Receipt Date: 20100416
  Transmission Date: 20101027
  Serious: No
  Sender: FDA-Public Use
  Company Number: 307222

PATIENT
  Age: 67 Year
  Sex: Male

DRUGS (3)
  1. VICTOZA [Suspect]
     Indication: INSULIN-REQUIRING TYPE 2 DIABETES MELLITUS
     Dosage: 0.6 MG, QD, SUBCUTANEOUS
     Route: 058
     Dates: start: 20100414
  2. JANUVIA [Concomitant]
  3. GLIMEPIRIDE [Concomitant]

REACTIONS (1)
  - HEART RATE INCREASED [None]
